FAERS Safety Report 6074256-6 (Version None)
Quarter: 2009Q1

REPORT INFORMATION
  Report Type: 
  Country: None (occurrence: None)
  Receive Date: 20090211
  Receipt Date: 20090202
  Transmission Date: 20090719
  Serious: Yes (Hospitalization)
  Sender: FDA-Public Use
  Company Number: PHHY2009JP04175

PATIENT
  Sex: Male

DRUGS (2)
  1. DIOVAN [Suspect]
     Dosage: 80 MG DAILY
     Route: 048
     Dates: start: 20071004
  2. THEOLONG [Concomitant]
     Dosage: 100 MG
     Route: 048
     Dates: start: 20080520

REACTIONS (1)
  - LARYNGEAL CANCER [None]
